FAERS Safety Report 19588395 (Version 1)
Quarter: 2021Q3

REPORT INFORMATION
  Report Type: Spontaneous
  Country: US (occurrence: US)
  Receive Date: 20210721
  Receipt Date: 20210721
  Transmission Date: 20211014
  Serious: Yes (Hospitalization, Other)
  Sender: FDA-Public Use
  Company Number: US-009507513-2107USA006038

PATIENT
  Sex: Male

DRUGS (1)
  1. TICE BCG [Suspect]
     Active Substance: BACILLUS CALMETTE-GUERIN SUBSTRAIN TICE LIVE ANTIGEN
     Indication: BLADDER CANCER
     Dosage: ONCE EVERY WEEK FOR 4 WEEKS
     Route: 043
     Dates: start: 2009, end: 2009

REACTIONS (2)
  - Product use issue [Unknown]
  - Bladder cancer recurrent [Recovering/Resolving]

NARRATIVE: CASE EVENT DATE: 2009
